FAERS Safety Report 6692569-1 (Version None)
Quarter: 2010Q2

REPORT INFORMATION
  Report Type: 
  Country: None (occurrence: None)
  Receive Date: 20100422
  Receipt Date: 20100414
  Transmission Date: 20101027
  Serious: Yes (Other)
  Sender: FDA-Public Use
  Company Number: GB-PFIZER INC-2010046807

PATIENT
  Age: 26 Week
  Sex: Female
  Weight: 67 kg

DRUGS (4)
  1. CHAMPIX [Suspect]
     Indication: SMOKING CESSATION THERAPY
     Dosage: 1 MG, 2X/DAY
     Route: 048
     Dates: start: 20100205, end: 20100330
  2. NORDETTE-28 [Concomitant]
     Indication: CONTRACEPTION
     Dosage: 1 DF, 1X/DAY
     Route: 048
     Dates: start: 20000101
  3. PROPRANOLOL [Concomitant]
     Indication: MIGRAINE
     Dosage: 40 MG, 1X/DAY
     Route: 048
     Dates: start: 20080401
  4. ZOLMITRIPTAN [Concomitant]
     Indication: MIGRAINE
     Dosage: 2.5 MG, AS NEEDED
     Dates: start: 20080401

REACTIONS (3)
  - CHEST PAIN [None]
  - HYPERVENTILATION [None]
  - PANIC ATTACK [None]
